FAERS Safety Report 21707642 (Version 2)
Quarter: 2023Q1

REPORT INFORMATION
  Report Type: Spontaneous
  Country: US (occurrence: US)
  Receive Date: 20221209
  Receipt Date: 20230111
  Transmission Date: 20230418
  Serious: No
  Sender: FDA-Public Use
  Company Number: US-Calliditas-2022CAL00582

PATIENT
  Age: 31 Year
  Sex: Male

DRUGS (4)
  1. TARPEYO [Suspect]
     Active Substance: BUDESONIDE
     Indication: IgA nephropathy
     Dosage: 8 MG (4 MG CAPSULES) ONCE DAILY
     Route: 048
     Dates: start: 20221118
  2. RAMIPRIL [Concomitant]
     Active Substance: RAMIPRIL
  3. FLUCONAZOLE [Concomitant]
     Active Substance: FLUCONAZOLE
  4. STELARA [Concomitant]
     Active Substance: USTEKINUMAB

REACTIONS (4)
  - Headache [Not Recovered/Not Resolved]
  - Blepharospasm [Recovering/Resolving]
  - Diarrhoea [Recovering/Resolving]
  - Prescribed underdose [Not Recovered/Not Resolved]

NARRATIVE: CASE EVENT DATE: 20221121
